FAERS Safety Report 18020703 (Version 2)
Quarter: 2020Q3

REPORT INFORMATION
  Report Type: Spontaneous
  Country: FR (occurrence: FR)
  Receive Date: 20200714
  Receipt Date: 20200925
  Transmission Date: 20201103
  Serious: Yes (Other)
  Sender: FDA-Public Use
  Company Number: FR-PFIZER INC-2020262040

PATIENT
  Age: 61 Year

DRUGS (3)
  1. VORICONAZOLE. [Suspect]
     Active Substance: VORICONAZOLE
     Dosage: 400 MG, 1X/DAY FOR 3 MONTS
     Route: 048
  2. VORICONAZOLE. [Suspect]
     Active Substance: VORICONAZOLE
     Indication: ASPERGILLUS INFECTION
     Dosage: 12 MG/KG/DAY, FIRST DAY (LOADING DOSE)
     Route: 042
  3. VORICONAZOLE. [Suspect]
     Active Substance: VORICONAZOLE
     Dosage: 8 MG/KG/DAY
     Route: 042

REACTIONS (4)
  - Blindness [Unknown]
  - Neurotoxicity [Unknown]
  - Paraesthesia [Unknown]
  - Central nervous system lesion [Recovered/Resolved]
